FAERS Safety Report 6518629-3 (Version None)
Quarter: 2009Q4

REPORT INFORMATION
  Report Type: 
  Country: None (occurrence: None)
  Receive Date: 20091228
  Receipt Date: 20091217
  Transmission Date: 20100525
  Serious: Yes (Hospitalization)
  Sender: FDA-Public Use
  Company Number: US-ROCHE-655189

PATIENT
  Age: 58 Year
  Sex: Female
  Weight: 59 kg

DRUGS (5)
  1. BONIVA [Suspect]
     Indication: OSTEOPOROSIS
     Route: 048
     Dates: start: 20070101, end: 20091001
  2. VITAMIN [Concomitant]
     Dosage: DRUG REPORTED AS VITAMINS; FREQUENCY: DAILY
  3. LEXAPRO [Concomitant]
     Dosage: DRUG REPORTED AS LEXIPRO
  4. CALCIUM [Concomitant]
  5. VITAMINE D [Concomitant]
     Dosage: DRUG REPORTED: VITAMIN D

REACTIONS (6)
  - DECUBITUS ULCER [None]
  - DYSPHAGIA [None]
  - EYE MOVEMENT DISORDER [None]
  - GASTROOESOPHAGEAL REFLUX DISEASE [None]
  - MUSCULOSKELETAL DISORDER [None]
  - PAIN IN EXTREMITY [None]
